FAERS Safety Report 10619649 (Version 4)
Quarter: 2015Q2

REPORT INFORMATION
  Report Type: Spontaneous
  Country: JP (occurrence: JP)
  Receive Date: 20141202
  Receipt Date: 20150609
  Transmission Date: 20150821
  Serious: Yes (Other)
  Sender: FDA-Public Use
  Company Number: JP-ELI_LILLY_AND_COMPANY-JP201411011200

PATIENT
  Age: 27 Year
  Sex: Female

DRUGS (1)
  1. ZYPREXA [Suspect]
     Active Substance: OLANZAPINE
     Indication: PRODUCT USED FOR UNKNOWN INDICATION
     Dosage: UNK
     Route: 048

REACTIONS (5)
  - Neuroleptic malignant syndrome [Unknown]
  - Diabetes mellitus [Unknown]
  - Encephalopathy [Unknown]
  - Off label use [Unknown]
  - Diabetic hyperosmolar coma [Recovering/Resolving]
